FAERS Safety Report 19511750 (Version 13)
Quarter: 2024Q3

REPORT INFORMATION
  Report Type: Other
  Country: PL (occurrence: PL)
  Receive Date: 20210709
  Receipt Date: 20240906
  Transmission Date: 20241017
  Serious: Yes (Hospitalization, Other)
  Sender: STRIDES
  Company Number: None

PATIENT
  Age: 62 Year
  Sex: Male
  Weight: 98 kg

DRUGS (53)
  1. AMLODIPINE [Suspect]
     Active Substance: AMLODIPINE BESYLATE
     Indication: Coronary artery disease
     Dosage: 10 MILLIGRAM, QD (IN MORNING)
     Route: 065
  2. AMLODIPINE [Suspect]
     Active Substance: AMLODIPINE BESYLATE
     Indication: Cardiac failure
     Dosage: 10/10 MG
     Route: 065
  3. ROSUVASTATIN [Suspect]
     Active Substance: ROSUVASTATIN\ROSUVASTATIN CALCIUM
     Indication: Carotid arteriosclerosis
     Dosage: 10 MILLIGRAM, QD (IN THE EVENING)
     Route: 065
  4. ROSUVASTATIN [Suspect]
     Active Substance: ROSUVASTATIN\ROSUVASTATIN CALCIUM
     Indication: Hypertension
     Dosage: 40 MILLIGRAM
     Route: 065
  5. ROSUVASTATIN [Suspect]
     Active Substance: ROSUVASTATIN\ROSUVASTATIN CALCIUM
     Indication: Disease risk factor
  6. METFORMIN [Suspect]
     Active Substance: METFORMIN HYDROCHLORIDE
     Indication: Product used for unknown indication
     Dosage: 850 MILLIGRAM, TID (TABLET)
     Route: 065
  7. METFORMIN [Suspect]
     Active Substance: METFORMIN HYDROCHLORIDE
     Dosage: 2550 MILLIGRAM, QD (TABLET)
     Route: 065
  8. PANTOPRAZOLE [Suspect]
     Active Substance: PANTOPRAZOLE
     Indication: Helicobacter gastritis
     Dosage: 20 MG, QD (IN THE MORNING)
     Route: 065
  9. PANTOPRAZOLE [Suspect]
     Active Substance: PANTOPRAZOLE
     Dosage: 40 MILLIGRAM, EVERY 12 HRS 2X40 MG
     Route: 065
  10. PANTOPRAZOLE [Suspect]
     Active Substance: PANTOPRAZOLE
     Dosage: 2X40 MG
     Route: 065
  11. LINAGLIPTIN [Suspect]
     Active Substance: LINAGLIPTIN
     Indication: Product used for unknown indication
     Dosage: 5 MILLIGRAM, QD
     Route: 065
  12. TELMISARTAN [Suspect]
     Active Substance: TELMISARTAN
     Indication: Product used for unknown indication
     Dosage: 80 MILLIGRAM, QD (IN MORNING)
     Route: 065
  13. TELMISARTAN [Suspect]
     Active Substance: TELMISARTAN
     Dosage: 80 MILLIGRAM, QD
     Route: 065
  14. FENOBIBRATE [Suspect]
     Active Substance: FENOFIBRATE
     Indication: Product used for unknown indication
     Dosage: 215 MILLIGRAM, QD (IN THE MORNING)
     Route: 065
  15. FENOBIBRATE [Suspect]
     Active Substance: FENOFIBRATE
     Dosage: 215 MILLIGRAM, QD (IN THE MORNING)
     Route: 065
  16. FENOBIBRATE [Suspect]
     Active Substance: FENOFIBRATE
     Dosage: 215 MILLIGRAM, QD
     Route: 065
  17. ASPIRIN [Suspect]
     Active Substance: ASPIRIN
     Indication: Hypertension
     Dosage: 75 MILLIGRAM, QD (IN THE EVENING)
     Route: 065
  18. ASPIRIN [Suspect]
     Active Substance: ASPIRIN
     Indication: Carotid arteriosclerosis
     Dosage: 75 MILLIGRAM, QD
     Route: 065
  19. ASPIRIN [Suspect]
     Active Substance: ASPIRIN
     Indication: Postoperative care
     Dosage: 75 MILLIGRAM, QD
     Route: 065
  20. ASPIRIN [Suspect]
     Active Substance: ASPIRIN
     Indication: Coronary artery bypass
     Dosage: ORAL SOLUTION
     Route: 048
  21. ASPIRIN [Suspect]
     Active Substance: ASPIRIN
     Indication: Postoperative care
  22. ASPIRIN [Suspect]
     Active Substance: ASPIRIN
     Indication: Carotid arteriosclerosis
  23. ASPIRIN [Suspect]
     Active Substance: ASPIRIN
     Indication: Postoperative care
  24. HYDROCHLOROTHIAZIDE [Suspect]
     Active Substance: HYDROCHLOROTHIAZIDE
     Indication: Product used for unknown indication
     Dosage: 12.5 MILLIGRAM, QD (IN MORNING)
     Route: 065
  25. HYDROCHLOROTHIAZIDE [Suspect]
     Active Substance: HYDROCHLOROTHIAZIDE
     Dosage: 12.5 MILLIGRAM, QD (IN MORNING)
     Route: 065
  26. HYDROCHLOROTHIAZIDE [Suspect]
     Active Substance: HYDROCHLOROTHIAZIDE
     Dosage: 13 MILLIGRAM
     Route: 065
  27. FLUTICASONE PROPIONATE\SALMETEROL XINAFOATE [Suspect]
     Active Substance: FLUTICASONE PROPIONATE\SALMETEROL XINAFOATE
     Indication: Product used for unknown indication
     Dosage: 2 DF (250 MICROG +50 MICROG) INHALATION
     Route: 055
  28. TRIMETAZIDINE [Suspect]
     Active Substance: TRIMETAZIDINE
     Indication: Product used for unknown indication
     Dosage: 20 MILLIGRAM, BID (MORNING AND EVENING)
     Route: 065
  29. TRIMETAZIDINE [Suspect]
     Active Substance: TRIMETAZIDINE
     Dosage: 40 MILLIGRAM, QD
     Route: 065
  30. CARVEDILOL [Suspect]
     Active Substance: CARVEDILOL
     Indication: Product used for unknown indication
     Dosage: 2 DOSAGE FORM, QD, (12.5 MILLIGRAM, BID)
     Route: 065
  31. CARVEDILOL [Suspect]
     Active Substance: CARVEDILOL
     Dosage: 12.5 MILLIGRAM, BID (TABLET)
     Route: 065
  32. CARVEDILOL [Suspect]
     Active Substance: CARVEDILOL
     Dosage: 12.5 MILLIGRAM, QD (TABLET)
     Route: 065
  33. CARVEDILOL [Suspect]
     Active Substance: CARVEDILOL
     Dosage: 13 MILLIGRAM, BID
     Route: 065
  34. BISOPROLOL [Suspect]
     Active Substance: BISOPROLOL\BISOPROLOL FUMARATE
     Indication: Heart failure with reduced ejection fraction
     Dosage: 7.5 MILLIGRAM
     Route: 065
  35. BISOPROLOL [Suspect]
     Active Substance: BISOPROLOL\BISOPROLOL FUMARATE
     Indication: Coronary artery disease
     Dosage: UNK
     Route: 065
  36. BISOPROLOL [Suspect]
     Active Substance: BISOPROLOL\BISOPROLOL FUMARATE
     Dosage: 8 MILLIGRAM
     Route: 065
  37. BISOPROLOL [Suspect]
     Active Substance: BISOPROLOL\BISOPROLOL FUMARATE
     Dosage: 8 MILLIGRAM
     Route: 065
  38. RAMIPRIL [Suspect]
     Active Substance: RAMIPRIL
     Indication: Coronary artery disease
     Dosage: UNK
     Route: 065
  39. RAMIPRIL [Suspect]
     Active Substance: RAMIPRIL
     Indication: Heart failure with reduced ejection fraction
     Dosage: 10 MILLIGRAM
     Route: 065
  40. RAMIPRIL [Suspect]
     Active Substance: RAMIPRIL
     Dosage: 10 MILLIGRAM
     Route: 065
  41. ESOMEPRAZOLE [Suspect]
     Active Substance: ESOMEPRAZOLE
     Indication: Renal failure
     Dosage: 20 MILLIGRAM
     Route: 065
  42. ESOMEPRAZOLE [Suspect]
     Active Substance: ESOMEPRAZOLE
     Indication: Antiplatelet therapy
  43. ESOMEPRAZOLE [Suspect]
     Active Substance: ESOMEPRAZOLE
     Indication: Postoperative care
  44. AMLODIPINE\RAMIPRIL [Suspect]
     Active Substance: AMLODIPINE\RAMIPRIL
     Indication: Coronary artery disease
     Dosage: 10 MILLIGRAM
     Route: 065
  45. AMLODIPINE\RAMIPRIL [Suspect]
     Active Substance: AMLODIPINE\RAMIPRIL
     Indication: Heart failure with reduced ejection fraction
  46. CLOPIDOGREL [Suspect]
     Active Substance: CLOPIDOGREL BISULFATE
     Indication: Postoperative care
     Dosage: 75 MILLIGRAM
     Route: 065
  47. CLOPIDOGREL [Suspect]
     Active Substance: CLOPIDOGREL BISULFATE
     Dosage: 75 MILLIGRAM
     Route: 065
  48. CLOPIDOGREL [Suspect]
     Active Substance: CLOPIDOGREL BISULFATE
     Dosage: UNK
     Route: 065
  49. CLOPIDOGREL HYDROCHLORIDE [Concomitant]
     Active Substance: CLOPIDOGREL HYDROCHLORIDE
     Indication: Postoperative care
     Dosage: UNK
     Route: 065
  50. CLOPIDOGREL HYDROCHLORIDE [Concomitant]
     Active Substance: CLOPIDOGREL HYDROCHLORIDE
     Indication: Product used for unknown indication
     Dosage: 75 MG
     Route: 065
  51. CLOPIDOGREL HYDROCHLORIDE [Concomitant]
     Active Substance: CLOPIDOGREL HYDROCHLORIDE
     Dosage: UNK
     Route: 065
  52. ESOMEPRAZOLE [Concomitant]
     Active Substance: ESOMEPRAZOLE
     Indication: Product used for unknown indication
     Dosage: UNK
     Route: 065
  53. ESOMEPRAZOLE [Concomitant]
     Active Substance: ESOMEPRAZOLE
     Dosage: UNK
     Route: 065

REACTIONS (55)
  - Intestinal obstruction [Unknown]
  - Heart failure with reduced ejection fraction [Unknown]
  - Diastolic dysfunction [Unknown]
  - Electrocardiogram QT prolonged [Unknown]
  - Tricuspid valve incompetence [Unknown]
  - Tricuspid valve incompetence [Unknown]
  - Rales [Unknown]
  - Electrocardiogram Q wave abnormal [Unknown]
  - Angiopathy [Unknown]
  - Carotid artery stenosis [Unknown]
  - Pericardial effusion [Unknown]
  - Chronic kidney disease [Unknown]
  - Hepatojugular reflux [Unknown]
  - Carotid arteriosclerosis [Unknown]
  - Ventricular hypokinesia [Unknown]
  - Systolic dysfunction [Unknown]
  - Aortic valve incompetence [Unknown]
  - Helicobacter gastritis [Unknown]
  - Hypotension [Unknown]
  - Rales [Unknown]
  - Cardiac failure [Unknown]
  - Left ventricular hypertrophy [Unknown]
  - Acute kidney injury [Unknown]
  - Coronary artery stenosis [Unknown]
  - Mitral valve incompetence [Unknown]
  - Mitral valve incompetence [Unknown]
  - Hyperlipidaemia [Unknown]
  - Occult blood [Unknown]
  - Oedema peripheral [Unknown]
  - Coronary artery disease [Unknown]
  - Ventricular arrhythmia [Unknown]
  - Acute myocardial infarction [Unknown]
  - Syncope [Unknown]
  - Supraventricular tachycardia [Unknown]
  - Ventricular tachycardia [Unknown]
  - Palpitations [Unknown]
  - Dyspnoea at rest [Unknown]
  - Fatigue [Unknown]
  - Asthenia [Unknown]
  - Cardiomegaly [Unknown]
  - Left ventricular dysfunction [Unknown]
  - Echocardiogram abnormal [Unknown]
  - Pulmonary valve disease [Unknown]
  - Stenosis [Unknown]
  - Cardiac discomfort [Unknown]
  - Ill-defined disorder [Unknown]
  - Skin lesion [Unknown]
  - Physical examination abnormal [Unknown]
  - Bundle branch block left [Unknown]
  - Anaemia macrocytic [Unknown]
  - Ejection fraction decreased [Unknown]
  - Pericardial disease [Unknown]
  - Mitral valve disease [Unknown]
  - Joint swelling [Unknown]
  - Off label use [Unknown]

NARRATIVE: CASE EVENT DATE: 20190918
